FAERS Safety Report 20964156 (Version 1)
Quarter: 2022Q2

REPORT INFORMATION
  Report Type: Spontaneous
  Country: US (occurrence: None)
  Receive Date: 20220615
  Receipt Date: 20220615
  Transmission Date: 20220721
  Serious: No
  Sender: FDA-Public Use
  Company Number: None

PATIENT
  Age: 87 Year
  Sex: Male
  Weight: 99.79 kg

DRUGS (27)
  1. BRILINTA [Suspect]
     Active Substance: TICAGRELOR
     Indication: Coronary arterial stent insertion
     Dosage: FREQUENCY : TWICE A DAY;?
     Route: 048
     Dates: start: 20220522, end: 20220524
  2. ALPHA LIPOIC ACID [Concomitant]
     Active Substance: .ALPHA.-LIPOIC ACID
  3. ASCORBIC ACID [Concomitant]
     Active Substance: ASCORBIC ACID
  4. aspirin 81 enteric coated [Concomitant]
  5. LIPITOR [Concomitant]
     Active Substance: ATORVASTATIN CALCIUM
  6. TUMS [Concomitant]
     Active Substance: CALCIUM CARBONATE
  7. COREG [Concomitant]
     Active Substance: CARVEDILOL
  8. VITAMIN D3 [Concomitant]
     Active Substance: CHOLECALCIFEROL
  9. clopidogrel (PLAVIX0 [Concomitant]
  10. coQ10 (UBIQUINOL) [Concomitant]
  11. cyanocobalamin (VITAMIN B-12) [Concomitant]
  12. ezetimibe (ZETIA) [Concomitant]
  13. FLAXSEED [Concomitant]
     Active Substance: FLAX SEED
  14. LASIX [Concomitant]
     Active Substance: FUROSEMIDE
  15. GINKGO [Concomitant]
     Active Substance: GINKGO
  16. Levoxyl (levothyroxine) [Concomitant]
  17. losartan (COZAAR) [Concomitant]
  18. BILBERRY [Concomitant]
     Active Substance: BILBERRY
  19. LUTEIN [Concomitant]
     Active Substance: LUTEIN
  20. nitroglycerin (NITROSTAT) [Concomitant]
  21. PROTONIX [Concomitant]
     Active Substance: PANTOPRAZOLE SODIUM
  22. pyridixine (VITAMIN B6) [Concomitant]
  23. HERBALS\SAW PALMETTO [Concomitant]
     Active Substance: HERBALS\SAW PALMETTO
  24. HERBALS\TURMERIC [Concomitant]
     Active Substance: HERBALS\TURMERIC
  25. VITAMIN A [Concomitant]
     Active Substance: VITAMIN A
  26. vitamin E mixed [Concomitant]
  27. TESTOSTERONE CYPIONATE [Concomitant]
     Active Substance: TESTOSTERONE CYPIONATE

REACTIONS (3)
  - Flushing [None]
  - Dyspnoea [None]
  - Visual impairment [None]

NARRATIVE: CASE EVENT DATE: 20220523
